FAERS Safety Report 8192060-X (Version None)
Quarter: 2012Q1

REPORT INFORMATION
  Report Type: 
  Country: None (occurrence: None)
  Receive Date: 20120307
  Receipt Date: 20120305
  Transmission Date: 20120608
  Serious: Yes (Other)
  Sender: FDA-Public Use
  Company Number: PHEH2012US005043

PATIENT

DRUGS (2)
  1. APRO [Concomitant]
     Indication: MYOCARDIAL INFARCTION
     Dosage: 75 MG, UNK
     Dates: start: 20030101
  2. DIOVAN [Suspect]
     Indication: MYOCARDIAL INFARCTION
     Dosage: 40 MG, UNK

REACTIONS (6)
  - JOINT SWELLING [None]
  - MASS [None]
  - FLUID RETENTION [None]
  - WEIGHT INCREASED [None]
  - VISION BLURRED [None]
  - DRUG INEFFECTIVE [None]
